FAERS Safety Report 25841178 (Version 1)
Quarter: 2025Q3

REPORT INFORMATION
  Report Type: Spontaneous
  Country: US (occurrence: None)
  Receive Date: 20250923
  Receipt Date: 20250923
  Transmission Date: 20251020
  Serious: Yes (Disabling)
  Sender: FDA-CTU
  Company Number: None

PATIENT
  Age: 72 Year
  Sex: Male

DRUGS (4)
  1. TACROLIMUS [Suspect]
     Active Substance: TACROLIMUS
     Indication: Intertrigo
     Dosage: OTHER QUANTITY : 1 APPLICATION;?FREQUENCY : TWICE A DAY;?
     Route: 061
     Dates: start: 20250919, end: 20250919
  2. OMEPRAZOLE [Concomitant]
     Active Substance: OMEPRAZOLE
  3. dexamethasone 0.25% [Concomitant]
  4. VITAMIN D [Concomitant]
     Active Substance: VITAMIN D NOS

REACTIONS (4)
  - Application site pain [None]
  - Application site pruritus [None]
  - Headache [None]
  - Abdominal discomfort [None]

NARRATIVE: CASE EVENT DATE: 20250919
